FAERS Safety Report 5901500-5 (Version None)
Quarter: 2008Q3

REPORT INFORMATION
  Report Type: 
  Country: None (occurrence: None)
  Receive Date: 20080926
  Receipt Date: 20080926
  Transmission Date: 20090109
  Serious: Yes (Life-Threatening)
  Sender: FDA-Public Use
  Company Number: None

PATIENT
  Age: 67 Year
  Sex: Female
  Weight: 63.05 kg

DRUGS (1)
  1. NARCAN [Suspect]
     Indication: POSTOPERATIVE CARE
     Dates: start: 20080530

REACTIONS (1)
  - CARDIO-RESPIRATORY ARREST [None]
